FAERS Safety Report 5875839-6 (Version None)
Quarter: 2008Q3

REPORT INFORMATION
  Report Type: 
  Country: None (occurrence: None)
  Receive Date: 20080909
  Receipt Date: 20080829
  Transmission Date: 20090109
  Serious: Yes (Disabling, Other)
  Sender: FDA-Public Use
  Company Number: GB-PFIZER INC-2008072685

PATIENT
  Age: 64 Year
  Sex: Female

DRUGS (10)
  1. CHANTIX [Suspect]
     Route: 048
     Dates: start: 20080807, end: 20080810
  2. AMINOPHYLLINE [Concomitant]
  3. CARBOCISTEINE [Concomitant]
  4. FUROSEMIDE [Concomitant]
     Dosage: DAILY DOSE:20MG-FREQ:DAILY
  5. LANSOPRAZOLE [Concomitant]
     Dosage: DAILY DOSE:30MG-FREQ:DAILY
  6. NAFTIDROFURYL OXALATE [Concomitant]
  7. PHOLCODINE LINCTUS [Concomitant]
  8. IPRATROPIUM BROMIDE [Concomitant]
  9. ALBUTEROL SPIROS [Concomitant]
  10. SYMBICORT [Concomitant]
     Dosage: FREQ:2 DOSE FORMS DAILY

REACTIONS (5)
  - CHRONIC OBSTRUCTIVE PULMONARY DISEASE [None]
  - DIARRHOEA [None]
  - DYSPNOEA [None]
  - STOMACH DISCOMFORT [None]
  - VOMITING [None]
